FAERS Safety Report 5031664-X (Version None)
Quarter: 2006Q2

REPORT INFORMATION
  Report Type: 
  Country: None (occurrence: None)
  Receive Date: 20060616
  Receipt Date: 20060530
  Transmission Date: 20061013
  Serious: Yes (Other)
  Sender: FDA-Public Use
  Company Number: US200605006701

PATIENT
  Age: 57 Year
  Sex: Male

DRUGS (4)
  1. HUMALOG [Suspect]
  2. HUMALOG PEN [Suspect]
     Dates: start: 20050101
  3. HUMALOG PEN (HUMALOG PEN) [Concomitant]
  4. LANTUS [Concomitant]

REACTIONS (6)
  - DEVICE FAILURE [None]
  - GANGRENE [None]
  - NEUROPATHY PERIPHERAL [None]
  - PHARMACEUTICAL PRODUCT COMPLAINT [None]
  - WOUND [None]
  - WOUND COMPLICATION [None]
